FAERS Safety Report 4282890-9 (Version None)
Quarter: 2004Q1

REPORT INFORMATION
  Report Type: 
  Country: None (occurrence: None)
  Receive Date: 20040130
  Receipt Date: 20030916
  Transmission Date: 20041129
  Serious: No
  Sender: FDA-Public Use
  Company Number: US-BRISTOL-MYERS SQUIBB COMPANY-12383766

PATIENT
  Age: 56 Year
  Sex: Male
  Weight: 102 kg

DRUGS (10)
  1. SERZONE [Suspect]
     Indication: AGORAPHOBIA
     Dosage: STARTED THERAPY ^6 TO 8 MONTHS AGO^
     Route: 048
     Dates: start: 20030101
  2. SERZONE [Suspect]
     Indication: OBSESSIVE-COMPULSIVE DISORDER
     Dosage: STARTED THERAPY ^6 TO 8 MONTHS AGO^
     Route: 048
     Dates: start: 20030101
  3. SERZONE [Suspect]
     Indication: PANIC DISORDER
     Dosage: STARTED THERAPY ^6 TO 8 MONTHS AGO^
     Route: 048
     Dates: start: 20030101
  4. SERZONE [Suspect]
     Indication: ANXIETY DISORDER
     Dosage: STARTED THERAPY ^6 TO 8 MONTHS AGO^
     Route: 048
     Dates: start: 20030101
  5. SERZONE [Suspect]
     Indication: DEPRESSION
     Dosage: STARTED THERAPY ^6 TO 8 MONTHS AGO^
     Route: 048
     Dates: start: 20030101
  6. KLONOPIN [Concomitant]
  7. ASPIRIN [Concomitant]
  8. PROSCAR [Concomitant]
  9. NEURONTIN [Concomitant]
  10. TENORMIN [Concomitant]

REACTIONS (1)
  - DEREALISATION [None]
